FAERS Safety Report 7364761-4 (Version None)
Quarter: 2011Q1

REPORT INFORMATION
  Report Type: 
  Country: None (occurrence: None)
  Receive Date: 20110321
  Receipt Date: 20110310
  Transmission Date: 20110831
  Serious: Yes (Hospitalization)
  Sender: FDA-Public Use
  Company Number: GB-BAXTER-2011BH006595

PATIENT
  Age: 36 Year
  Sex: Female

DRUGS (9)
  1. CISPLATIN [Suspect]
     Route: 065
     Dates: start: 20080101, end: 20080101
  2. ETOPOSIDE [Suspect]
     Route: 065
     Dates: start: 20080101, end: 20080101
  3. ETOPOSIDE [Suspect]
     Indication: OVARIAN GERM CELL CANCER
     Route: 065
     Dates: start: 20080301, end: 20080301
  4. VINCRISTINE SULFATE [Suspect]
     Indication: OVARIAN GERM CELL CANCER
     Route: 065
     Dates: start: 20080101, end: 20080101
  5. BLEOMYCIN GENERIC [Suspect]
     Indication: OVARIAN GERM CELL CANCER
     Route: 065
     Dates: start: 20080101, end: 20080101
  6. DACTINOMYCIN [Suspect]
     Indication: OVARIAN GERM CELL CANCER
     Route: 065
     Dates: start: 20080101, end: 20080101
  7. METHOTREXATE GENERIC [Suspect]
     Indication: OVARIAN GERM CELL CANCER
     Route: 065
     Dates: start: 20080101, end: 20080101
  8. CYCLOPHOSPHAMIDE [Suspect]
     Indication: OVARIAN GERM CELL CANCER
     Route: 065
     Dates: start: 20080101, end: 20080101
  9. CISPLATIN [Suspect]
     Indication: OVARIAN GERM CELL CANCER
     Route: 065
     Dates: start: 20080301, end: 20080301

REACTIONS (2)
  - TUBERCULOSIS OF CENTRAL NERVOUS SYSTEM [None]
  - BLOOD HUMAN CHORIONIC GONADOTROPIN INCREASED [None]
